FAERS Safety Report 12633305 (Version 3)
Quarter: 2016Q3

REPORT INFORMATION
  Report Type: Spontaneous
  Country: US (occurrence: US)
  Receive Date: 20160808
  Receipt Date: 20160808
  Transmission Date: 20161109
  Serious: No
  Sender: FDA-Public Use
  Company Number: US-BEH-2016060451

PATIENT
  Sex: Female
  Weight: 60 kg

DRUGS (25)
  1. LIDOCAINE-PRILOCAINE [Concomitant]
     Active Substance: LIDOCAINE\PRILOCAINE
  2. TAMSULOSIN [Concomitant]
     Active Substance: TAMSULOSIN
  3. SINGULAIR [Concomitant]
     Active Substance: MONTELUKAST SODIUM
  4. LACTULOSE. [Concomitant]
     Active Substance: LACTULOSE
  5. HYDROCORTISONE. [Concomitant]
     Active Substance: HYDROCORTISONE
  6. MULTIVITAMIN [Concomitant]
     Active Substance: VITAMINS
  7. PULMICORT TURBUHALER [Concomitant]
     Active Substance: BUDESONIDE
  8. TERAZOSIN [Concomitant]
     Active Substance: TERAZOSIN\TERAZOSIN HYDROCHLORIDE
  9. NASONEX [Concomitant]
     Active Substance: MOMETASONE FUROATE
  10. CARDURA [Concomitant]
     Active Substance: DOXAZOSIN MESYLATE
  11. ADCIRCA [Concomitant]
     Active Substance: TADALAFIL
  12. ASPIRIN. [Concomitant]
     Active Substance: ASPIRIN
  13. CRESTOR [Concomitant]
     Active Substance: ROSUVASTATIN CALCIUM
  14. EPINEPHRINE. [Concomitant]
     Active Substance: EPINEPHRINE
  15. FUROSEMIDE. [Concomitant]
     Active Substance: FUROSEMIDE
  16. NEXIUM [Concomitant]
     Active Substance: ESOMEPRAZOLE MAGNESIUM
  17. ALBUTEROL. [Concomitant]
     Active Substance: ALBUTEROL
  18. HIZENTRA [Suspect]
     Active Substance: HUMAN IMMUNOGLOBULIN G
     Indication: IMMUNODEFICIENCY COMMON VARIABLE
     Route: 058
  19. PATANASE [Concomitant]
     Active Substance: OLOPATADINE HYDROCHLORIDE
  20. LEVOTHYROXINE. [Concomitant]
     Active Substance: LEVOTHYROXINE
  21. BENAZEPRIL [Concomitant]
     Active Substance: BENAZEPRIL HYDROCHLORIDE
  22. FERROUS SULFATE. [Concomitant]
     Active Substance: FERROUS SULFATE
  23. VITAMIN B COMPLEX [Concomitant]
     Active Substance: CYANOCOBALAMIN\DEXPANTHENOL\NIACINAMIDE\PYRIDOXINE HYDROCHLORIDE\RIBOFLAVIN 5^-PHOSPHATE SODIUM\THIAMINE HYDROCHLORIDE\VITAMIN B COMPLEX
  24. MICARDIS [Concomitant]
     Active Substance: TELMISARTAN
  25. CARDIZEM [Concomitant]
     Active Substance: DILTIAZEM HYDROCHLORIDE

REACTIONS (1)
  - Infection [Unknown]
